FAERS Safety Report 23262300 (Version 7)
Quarter: 2024Q2

REPORT INFORMATION
  Report Type: Spontaneous
  Country: US (occurrence: US)
  Receive Date: 20231205
  Receipt Date: 20240527
  Transmission Date: 20240716
  Serious: Yes (Other)
  Sender: FDA-Public Use
  Company Number: US-PFIZER INC-202101535170

PATIENT
  Age: 64 Year
  Sex: Female
  Weight: 64.41 kg

DRUGS (10)
  1. ESTRING [Suspect]
     Active Substance: ESTRADIOL
     Indication: Hysterectomy
     Dosage: 7.5 UG, DAILY (INSERTED VAGINALLY EVERY 3 MONTHS)
     Route: 067
  2. ESTRING [Suspect]
     Active Substance: ESTRADIOL
     Indication: Hot flush
     Dosage: 2 MG VAGINALLY RING EVERY 90 DAYS
     Route: 067
  3. ESTRING [Suspect]
     Active Substance: ESTRADIOL
     Indication: Night sweats
  4. ESTRING [Suspect]
     Active Substance: ESTRADIOL
     Indication: Claustrophobia
  5. ESTRING [Suspect]
     Active Substance: ESTRADIOL
     Indication: Vulvovaginal dryness
  6. ESTRING [Suspect]
     Active Substance: ESTRADIOL
     Indication: Atrophic vulvovaginitis
  7. HERBALS\VITAMINS [Suspect]
     Active Substance: HERBALS\VITAMINS
     Dosage: ONE A DAY SWALLOW WITH A MEAL
  8. HERBALS\VITAMINS [Suspect]
     Active Substance: HERBALS\VITAMINS
     Dosage: TWO PILLS A DAY SWALLOW WITH A MEAL
  9. PREMARIN [Concomitant]
     Active Substance: ESTROGENS, CONJUGATED
     Dosage: UNK
  10. PREMARIN [Concomitant]
     Active Substance: ESTROGENS, CONJUGATED
     Dosage: UNK

REACTIONS (7)
  - Skin laceration [Unknown]
  - Fatigue [Not Recovered/Not Resolved]
  - Disturbance in attention [Unknown]
  - Peripheral swelling [Recovered/Resolved]
  - Product prescribing error [Unknown]
  - Off label use [Unknown]
  - Drug ineffective for unapproved indication [Not Recovered/Not Resolved]

NARRATIVE: CASE EVENT DATE: 20230101
